FAERS Safety Report 7123881-X (Version None)
Quarter: 2010Q4

REPORT INFORMATION
  Report Type: 
  Country: None (occurrence: None)
  Receive Date: 20101125
  Receipt Date: 20101115
  Transmission Date: 20110411
  Serious: Yes (Other)
  Sender: FDA-Public Use
  Company Number: SE-AMGEN-SWESP2010005421

PATIENT

DRUGS (4)
  1. ENBREL [Suspect]
     Indication: PRODUCT USED FOR UNKNOWN INDICATION
     Dosage: 25 MG, 2X/WEEK
     Dates: start: 19990101, end: 20050101
  2. ENBREL [Suspect]
     Dosage: 50 MG, WEEKLY
     Dates: start: 20050101
  3. METHOTREXATE [Concomitant]
  4. CORTISONE [Concomitant]

REACTIONS (6)
  - ARTHRITIS [None]
  - JOINT ARTHROPLASTY [None]
  - JOINT SWELLING [None]
  - LIMB DISCOMFORT [None]
  - MUSCULOSKELETAL PAIN [None]
  - THERAPY CESSATION [None]
